FAERS Safety Report 4511064-9 (Version None)
Quarter: 2004Q4

REPORT INFORMATION
  Report Type: 
  Country: None (occurrence: None)
  Receive Date: 20041015
  Receipt Date: 20040225
  Transmission Date: 20050328
  Serious: Yes (Other)
  Sender: FDA-Public Use
  Company Number: 2004012911

PATIENT
  Age: 51 Year
  Sex: Male
  Weight: 101.6057 kg

DRUGS (4)
  1. NEURONTIN [Suspect]
     Indication: PELVIC PAIN
     Dosage: 1800 MG (DAILY), ORAL
     Route: 048
     Dates: start: 20020101, end: 20040201
  2. ROFECOXIB [Concomitant]
  3. MONTELUKAST SODIUM (MONTELUKAST SODIUM) [Concomitant]
  4. PREDNISONE [Concomitant]

REACTIONS (1)
  - DEAFNESS [None]
